FAERS Safety Report 23689778 (Version 1)
Quarter: 2024Q1

REPORT INFORMATION
  Report Type: Spontaneous
  Country: FR (occurrence: FR)
  Receive Date: 20240331
  Receipt Date: 20240331
  Transmission Date: 20240409
  Serious: Yes (Hospitalization)
  Sender: FDA-Public Use
  Company Number: None

PATIENT
  Age: 22 Year
  Sex: Female

DRUGS (7)
  1. DEXAMETHASONE [Suspect]
     Active Substance: DEXAMETHASONE
     Indication: Tooth avulsion
     Route: 065
     Dates: start: 20240223, end: 20240223
  2. ONDANSETRON [Suspect]
     Active Substance: ONDANSETRON
     Indication: Tooth avulsion
     Route: 065
     Dates: start: 20240223, end: 20240223
  3. KETOPROFEN [Suspect]
     Active Substance: KETOPROFEN
     Indication: Tooth avulsion
     Route: 048
     Dates: start: 20240223, end: 20240223
  4. AMOXICILLIN [Suspect]
     Active Substance: AMOXICILLIN
     Indication: Tooth infection
     Route: 048
     Dates: start: 20240223, end: 20240224
  5. ALFENTANIL HYDROCHLORIDE [Suspect]
     Active Substance: ALFENTANIL HYDROCHLORIDE
     Indication: Tooth avulsion
     Route: 065
     Dates: start: 20240223, end: 20240223
  6. DIPRIVAN [Suspect]
     Active Substance: ISOPROPYL ALCOHOL\PROPOFOL
     Indication: Tooth avulsion
     Route: 065
     Dates: start: 20240223, end: 20240223
  7. TIAPROFENIC ACID [Suspect]
     Active Substance: TIAPROFENIC ACID
     Indication: Tooth avulsion
     Route: 065
     Dates: start: 20240223, end: 20240223

REACTIONS (1)
  - Acute generalised exanthematous pustulosis [Recovering/Resolving]

NARRATIVE: CASE EVENT DATE: 20240224
